FAERS Safety Report 6035241-3 (Version None)
Quarter: 2009Q1

REPORT INFORMATION
  Report Type: 
  Country: None (occurrence: None)
  Receive Date: 20090109
  Receipt Date: 20081224
  Transmission Date: 20090719
  Serious: Yes (Other)
  Sender: FDA-Public Use
  Company Number: FR-SEPTODONT-200800211

PATIENT
  Sex: Female

DRUGS (3)
  1. SCANDONEST L [Suspect]
     Indication: LOCAL ANAESTHESIA
     Dosage: DENTAL INJECTION
  2. OPTIJECT 350 (IOVERSOL) [Concomitant]
  3. CALCIUM + VITAMIN D3 (COLECALCIFEROL, CALCIUM CARBONATE) [Concomitant]

REACTIONS (3)
  - ANGIOEDEMA [None]
  - PRURITUS [None]
  - RASH [None]
